FAERS Safety Report 22946218 (Version 3)
Quarter: 2024Q4

REPORT INFORMATION
  Report Type: Spontaneous
  Country: SI (occurrence: SI)
  Receive Date: 20230915
  Receipt Date: 20241211
  Transmission Date: 20250114
  Serious: Yes (Other)
  Sender: BAXTER
  Company Number: SI-SANDOZ-SDZ2023SI021028

PATIENT
  Sex: Female

DRUGS (13)
  1. DOXORUBICIN [Suspect]
     Active Substance: DOXORUBICIN
     Indication: Product used for unknown indication
     Dosage: UNK UNK,  Q3W, START DATE: MAY-2023, STOP DATE: AUG-2023
     Route: 065
  2. CAPECITABINE [Suspect]
     Active Substance: CAPECITABINE
     Indication: Product used for unknown indication
     Dosage: 1800 MG, Q12H (FOR 14 DAYS), START DATE: SEP-2019, END DATE: MAR-2020
     Route: 065
  3. FULVESTRANT [Suspect]
     Active Substance: FULVESTRANT
     Indication: Product used for unknown indication
     Dosage: 500 MG, Q4W, START DATE: APR-2019, STOP DATE: SEP-2019
     Route: 058
  4. EVEROLIMUS [Suspect]
     Active Substance: EVEROLIMUS
     Indication: Product used for unknown indication
     Dosage: EVEROLIMUS 10MG/D;EXEMESTANE 25MG/D, START DATE: MAR-2020, STOP DATE: DEC-2020
     Route: 065
  5. ZOLEDRONIC ACID [Suspect]
     Active Substance: ZOLEDRONIC ACID
     Indication: Product used for unknown indication
     Dosage: 4 MG, Q3MO, START DATE: NOV-2022, STOP DATE: APR-2023
     Route: 065
  6. ZOLEDRONIC ACID [Suspect]
     Active Substance: ZOLEDRONIC ACID
     Dosage: 4 MG/3 MONTHS, START DATE: SEP-2019, STOP DATE: MAR-2020
     Route: 065
  7. ZOLEDRONIC ACID [Suspect]
     Active Substance: ZOLEDRONIC ACID
     Dosage: 4 MG, Q3MO, START DATE: DEC-2020, STOP DATE: NOV-2022
     Route: 065
  8. ZOLEDRONIC ACID [Suspect]
     Active Substance: ZOLEDRONIC ACID
     Dosage: 4 MG, Q3MO, START DATE: MAY-2023, STOP DATE: AUG-2023
     Route: 042
  9. ZOLEDRONIC ACID [Suspect]
     Active Substance: ZOLEDRONIC ACID
     Dosage: 4 MG, Q3MO, START DATE: MAR-2020, STOP DATE: DEC-2020
     Route: 065
  10. OLAPARIB [Suspect]
     Active Substance: OLAPARIB
     Indication: Product used for unknown indication
     Dosage: 600 MG,1 DAY (300 MG, Q12H), START DATE: DEC-2020, STOP DATE: NOV-2022
     Route: 065
  11. EVEROLIMUS [Suspect]
     Active Substance: EVEROLIMUS
     Indication: Product used for unknown indication
     Dosage: EVEROLIMUS 10MG/D; EXEMESTANE 25MG/D, START DATE: MAR-2020, STOP DATE: DEC-2020
     Route: 065
  12. FASLODEX [Suspect]
     Active Substance: FULVESTRANT
     Indication: Product used for unknown indication
     Dosage: 500 MG Q4W, START DATE: APR-2019, STOP DATE: SEP-2019
     Route: 065
  13. EXEMESTANE [Suspect]
     Active Substance: EXEMESTANE

REACTIONS (10)
  - Disease progression [Unknown]
  - Therapeutic product effect incomplete [Unknown]
  - Bone pain [Unknown]
  - Pain [Unknown]
  - Dyspnoea [Unknown]
  - Vomiting [Unknown]
  - Stomatitis [Unknown]
  - Nausea [Unknown]
  - Fatigue [Unknown]
  - Anaemia [Unknown]
